FAERS Safety Report 10384793 (Version 2)
Quarter: 2014Q3

REPORT INFORMATION
  Report Type: Spontaneous
  Country: US (occurrence: US)
  Receive Date: 20140814
  Receipt Date: 20140822
  Transmission Date: 20150326
  Serious: No
  Sender: FDA-Public Use
  Company Number: US-BAYER-2014-121215

PATIENT
  Age: 25 Year
  Sex: Female
  Weight: 136 kg

DRUGS (3)
  1. SYNTHROID [Concomitant]
     Active Substance: LEVOTHYROXINE SODIUM
  2. ALEVE [Suspect]
     Active Substance: NAPROXEN SODIUM
     Indication: ANALGESIC THERAPY
  3. ALEVE [Suspect]
     Active Substance: NAPROXEN SODIUM
     Indication: PAIN
     Dosage: 2 DF, TID
     Route: 048
     Dates: start: 201402

REACTIONS (3)
  - Incorrect drug administration duration [None]
  - Intentional product misuse [None]
  - Incorrect dose administered [None]

NARRATIVE: CASE EVENT DATE: 201402
